FAERS Safety Report 15118689 (Version 2)
Quarter: 2018Q3

REPORT INFORMATION
  Report Type: Spontaneous
  Country: US (occurrence: US)
  Receive Date: 20180709
  Receipt Date: 20180727
  Transmission Date: 20181010
  Serious: No
  Sender: FDA-Public Use
  Company Number: US-JNJFOC-20180609552

PATIENT
  Age: 31 Year
  Sex: Male
  Weight: 83.92 kg

DRUGS (3)
  1. HUMALOG [Concomitant]
     Active Substance: INSULIN LISPRO
     Indication: TYPE 1 DIABETES MELLITUS
     Route: 050
     Dates: start: 2002
  2. LEVEMIR [Concomitant]
     Active Substance: INSULIN DETEMIR
     Indication: TYPE 1 DIABETES MELLITUS
     Dosage: 24 UNITS IN THE MORNING AND 20 UNITS AT NIGHT
     Route: 050
     Dates: start: 2015
  3. FENTANYL. [Suspect]
     Active Substance: FENTANYL
     Indication: SYRINGOMYELIA
     Route: 062
     Dates: start: 20180517

REACTIONS (2)
  - Drug ineffective [Unknown]
  - Application site erythema [Unknown]

NARRATIVE: CASE EVENT DATE: 2018
